FAERS Safety Report 4699357-6 (Version None)
Quarter: 2005Q2

REPORT INFORMATION
  Report Type: 
  Country: None (occurrence: None)
  Receive Date: 20050624
  Receipt Date: 20050613
  Transmission Date: 20051028
  Serious: Yes (Hospitalization, Other)
  Sender: FDA-Public Use
  Company Number: US-KINGPHARMUSA00001-K200500806

PATIENT
  Age: 48 Year
  Sex: Male

DRUGS (4)
  1. SEPTRA [Suspect]
  2. BETA BLOCKING AGENTS [Concomitant]
     Dates: start: 20050101
  3. THYROXINE SODIUM [Concomitant]
     Dates: start: 20050101
  4. ALPHA-ADRENORECEPTOR ANTAGONISTS [Concomitant]
     Dates: start: 20050101

REACTIONS (4)
  - GAIT DISTURBANCE [None]
  - MENINGITIS ASEPTIC [None]
  - NERVOUS SYSTEM DISORDER [None]
  - WALKING DISABILITY [None]
